FAERS Safety Report 4862109-8 (Version None)
Quarter: 2005Q4

REPORT INFORMATION
  Report Type: 
  Country: None (occurrence: None)
  Receive Date: 20051201
  Receipt Date: 20050824
  Transmission Date: 20060501
  Serious: No
  Sender: FDA-Public Use
  Company Number: 2005PV001552

PATIENT
  Age: 74 Year
  Sex: Female
  Weight: 75.7507 kg

DRUGS (2)
  1. BYETTA [Suspect]
     Indication: DIABETES MELLITUS NON-INSULIN-DEPENDENT
     Dosage: 5 MCG; BID; SC
     Route: 058
     Dates: start: 20050717, end: 20050819
  2. HUMULIN [Concomitant]

REACTIONS (4)
  - FEELING JITTERY [None]
  - MUSCLE TIGHTNESS [None]
  - NAUSEA [None]
  - SOMNOLENCE [None]
